FAERS Safety Report 10068679 (Version 2)
Quarter: 2014Q2

REPORT INFORMATION
  Report Type: Spontaneous
  Country: GB (occurrence: GB)
  Receive Date: 20140409
  Receipt Date: 20140417
  Transmission Date: 20141212
  Serious: Yes (Hospitalization, Other)
  Sender: FDA-Public Use
  Company Number: PHFR2014GB002637

PATIENT
  Age: 70 Year
  Sex: Male

DRUGS (6)
  1. CLOZARIL [Suspect]
     Indication: SCHIZOPHRENIA
     Dosage: 200 MG, DAILY
     Route: 048
     Dates: start: 20010701
  2. DIAZEPAM [Concomitant]
     Dosage: 1 MG, DAILY
     Route: 048
  3. PAROXETINE [Concomitant]
     Dosage: 20 MG, DAILY
     Route: 048
  4. OMEPRAZOLE [Concomitant]
     Dosage: 40 MG, DAILY
     Route: 048
  5. FLECAINIDE [Concomitant]
     Dosage: 100 MG, DAILY
     Route: 048
  6. HYDROCORTISONE [Concomitant]
     Dosage: 0.1 MG, DAILY
     Route: 048

REACTIONS (3)
  - Sepsis [Recovered/Resolved]
  - Anaemia [Recovered/Resolved]
  - Pneumonia [Recovered/Resolved]
